FAERS Safety Report 6136466-9 (Version None)
Quarter: 2009Q1

REPORT INFORMATION
  Report Type: 
  Country: None (occurrence: None)
  Receive Date: 20090325
  Receipt Date: 20090308
  Transmission Date: 20090719
  Serious: Yes (Other)
  Sender: FDA-Public Use
  Company Number: 2005S1004555

PATIENT
  Age: 64 Year
  Sex: Female
  Weight: 90.7194 kg

DRUGS (12)
  1. PHOSPHOSODA FLAVOR NOT SPECIFIED [Suspect]
     Indication: COLONOSCOPY
     Dosage: 90 ML; TOTAL; PO
     Route: 048
     Dates: start: 20020113, end: 20020113
  2. ALPRAZOLAM [Concomitant]
  3. DARVOCET /00220901/ [Concomitant]
  4. ACCUPRIL [Concomitant]
  5. HYDROCHLOROTHIAZIDE [Concomitant]
  6. CELEBREX [Concomitant]
  7. PREMARIN [Concomitant]
  8. SYNTHROID [Concomitant]
  9. TIAZAC /00489702/ [Concomitant]
  10. GLUCOSAMINE [Concomitant]
  11. VITAMIN E /00110501/ [Concomitant]
  12. XANAX [Concomitant]

REACTIONS (1)
  - RENAL FAILURE CHRONIC [None]
